FAERS Safety Report 8351527-1 (Version None)
Quarter: 2012Q2

REPORT INFORMATION
  Report Type: 
  Country: None (occurrence: None)
  Receive Date: 20120511
  Receipt Date: 20120502
  Transmission Date: 20120825
  Serious: Yes (Other)
  Sender: FDA-Public Use
  Company Number: US-BRISTOL-MYERS SQUIBB COMPANY-16326993

PATIENT
  Age: 58 Year
  Sex: Female

DRUGS (1)
  1. COUMADIN [Suspect]
     Indication: HEART VALVE REPLACEMENT

REACTIONS (4)
  - INTESTINAL OPERATION [None]
  - CATARACT [None]
  - CARDIAC OPERATION [None]
  - LOWER LIMB FRACTURE [None]
